FAERS Safety Report 8797980 (Version 2)
Quarter: 2015Q2

REPORT INFORMATION
  Report Type: Report from Study
  Country: US (occurrence: US)
  Receive Date: 20120919
  Receipt Date: 20150630
  Transmission Date: 20150821
  Serious: Yes (Death, Hospitalization)
  Sender: FDA-Public Use
  Company Number: US-ROCHE-1128311

PATIENT
  Sex: Female

DRUGS (16)
  1. CARBOPLATIN. [Suspect]
     Active Substance: CARBOPLATIN
     Indication: PRODUCT USED FOR UNKNOWN INDICATION
     Route: 065
  2. SOLU-MEDROL [Concomitant]
     Active Substance: METHYLPREDNISOLONE SODIUM SUCCINATE
  3. HEPARIN [Concomitant]
     Active Substance: HEPARIN SODIUM
     Route: 065
  4. DECADRON [Concomitant]
     Active Substance: DEXAMETHASONE
     Route: 042
  5. PROCRIT [Concomitant]
     Active Substance: ERYTHROPOIETIN
     Route: 058
  6. ANZEMET [Concomitant]
     Active Substance: DOLASETRON MESYLATE
     Route: 065
  7. DURAGESIC [Concomitant]
     Active Substance: FENTANYL
     Route: 065
  8. PEGFILGRASTIM [Concomitant]
     Active Substance: PEGFILGRASTIM
     Route: 065
  9. GEMZAR [Concomitant]
     Active Substance: GEMCITABINE HYDROCHLORIDE
     Route: 042
  10. ALOXI [Concomitant]
     Active Substance: PALONOSETRON HYDROCHLORIDE
     Route: 042
  11. DIFLUCAN [Concomitant]
     Active Substance: FLUCONAZOLE
     Route: 042
  12. AVASTIN [Suspect]
     Active Substance: BEVACIZUMAB
     Indication: BONE CANCER
     Route: 042
     Dates: start: 20051207
  13. TAXOTERE [Concomitant]
     Active Substance: DOCETAXEL
     Route: 042
  14. ZOFRAN [Concomitant]
     Active Substance: ONDANSETRON HYDROCHLORIDE
     Route: 065
  15. FILGRASTIM [Concomitant]
     Active Substance: FILGRASTIM
     Route: 065
  16. GRANISETRON [Concomitant]
     Active Substance: GRANISETRON
     Route: 065

REACTIONS (15)
  - Abdominal pain [Unknown]
  - Ascites [Unknown]
  - Urinary tract infection [Unknown]
  - Gastrointestinal disorder [Unknown]
  - Dysuria [Unknown]
  - Diarrhoea [Unknown]
  - Weight decreased [Unknown]
  - Rash [Unknown]
  - Asthenia [Unknown]
  - Metastases to liver [Unknown]
  - Death [Fatal]
  - Abdominal tenderness [Unknown]
  - Nausea [Unknown]
  - Oral candidiasis [Unknown]
  - Decreased appetite [Unknown]
